FAERS Safety Report 5154427-3 (Version None)
Quarter: 2006Q4

REPORT INFORMATION
  Report Type: 
  Country: None (occurrence: None)
  Receive Date: 20061114
  Receipt Date: 20061102
  Transmission Date: 20070319
  Serious: Yes (Other)
  Sender: FDA-Public Use
  Company Number: 2006134355

PATIENT
  Age: 15 Year
  Sex: Male
  Weight: 130 kg

DRUGS (2)
  1. CLINDAMYCIN PHOSPHATE [Suspect]
     Dosage: 2400 MG (600 MG, 4 IN 1 D), INTRAVENOUS
     Route: 042
     Dates: start: 20060101
  2. METRONIDAZOLE [Suspect]
     Dosage: 1000 MG, INTRAVENOUS
     Route: 042
     Dates: start: 20060101

REACTIONS (1)
  - ALCOHOL INTOLERANCE [None]
